FAERS Safety Report 8490978-1 (Version None)
Quarter: 2012Q2

REPORT INFORMATION
  Report Type: 
  Country: None (occurrence: None)
  Receive Date: 20120627
  Receipt Date: 20120619
  Transmission Date: 20120825
  Serious: Yes (Death)
  Sender: FDA-Public Use
  Company Number: JPI-P-022228

PATIENT
  Age: 54 Year
  Sex: Male

DRUGS (3)
  1. XYREM [Suspect]
     Indication: FIBROMYALGIA
     Dosage: ORAL; 11 GM (5.5 GM, 2 IN 1 D), ORAL
     Route: 048
     Dates: start: 20040713
  2. XYREM [Suspect]
     Indication: FIBROMYALGIA
     Dosage: ORAL; 11 GM (5.5 GM, 2 IN 1 D), ORAL
     Route: 048
     Dates: end: 20060601
  3. AMLODIPINE [Concomitant]

REACTIONS (1)
  - DEATH [None]
